FAERS Safety Report 6994307-1 (Version None)
Quarter: 2010Q3

REPORT INFORMATION
  Report Type: 
  Country: None (occurrence: None)
  Receive Date: 20100917
  Receipt Date: 20100909
  Transmission Date: 20110219
  Serious: Yes (Hospitalization)
  Sender: FDA-Public Use
  Company Number: US-ABBOTT-10P-163-0670829-00

PATIENT
  Sex: Female
  Weight: 104.42 kg

DRUGS (4)
  1. NIASPAN [Suspect]
     Indication: ARTERIOSCLEROSIS
     Dates: start: 20091201, end: 20100801
  2. NIASPAN [Suspect]
     Indication: HIGH DENSITY LIPOPROTEIN DECREASED
  3. SIMCOR [Suspect]
     Indication: ARTERIOSCLEROSIS
     Dosage: 500/20
     Dates: start: 20100827
  4. SIMCOR [Suspect]
     Indication: HIGH DENSITY LIPOPROTEIN DECREASED

REACTIONS (2)
  - EPISTAXIS [None]
  - FLUSHING [None]
